FAERS Safety Report 17493996 (Version 1)
Quarter: 2020Q1

REPORT INFORMATION
  Report Type: Spontaneous
  Country: US (occurrence: US)
  Receive Date: 20200304
  Receipt Date: 20200304
  Transmission Date: 20200409
  Serious: Yes (Death, Hospitalization)
  Sender: FDA-Public Use
  Company Number: US-TEVA-2020-US-1193373

PATIENT
  Age: 32 Year
  Sex: Male

DRUGS (3)
  1. BUPROPION. [Suspect]
     Active Substance: BUPROPION
     Indication: INTENTIONAL OVERDOSE
  2. BUPROPION. [Suspect]
     Active Substance: BUPROPION
     Indication: COMPLETED SUICIDE
     Dosage: TWO HANDFULS OF BUPROPION 150MG TABLETS
     Route: 065
  3. FAT EMULSION NOS [Suspect]
     Active Substance: EGG PHOSPHOLIPIDS\SAFFLOWER OIL\SOYBEAN OIL
     Indication: OVERDOSE
     Route: 042

REACTIONS (7)
  - Completed suicide [Fatal]
  - Intentional overdose [Fatal]
  - Ventricular hypokinesia [Fatal]
  - Shock [Fatal]
  - Seizure [Fatal]
  - Congestive cardiomyopathy [Fatal]
  - Drug ineffective [Unknown]
